FAERS Safety Report 4433875-0 (Version None)
Quarter: 2004Q3

REPORT INFORMATION
  Report Type: 
  Country: None (occurrence: None)
  Receive Date: 20040826
  Receipt Date: 20040816
  Transmission Date: 20050211
  Serious: Yes (Hospitalization)
  Sender: FDA-Public Use
  Company Number: SE-GLAXOSMITHKLINE-B0342716A

PATIENT
  Age: 21 Year
  Sex: Female

DRUGS (1)
  1. ZYBAN [Suspect]
     Route: 048
     Dates: start: 20040401, end: 20040502

REACTIONS (6)
  - COLD SWEAT [None]
  - DIZZINESS [None]
  - NAUSEA [None]
  - PRURITUS [None]
  - RASH [None]
  - SENSATION OF FOREIGN BODY [None]
